FAERS Safety Report 23698221 (Version 1)
Quarter: 2024Q2

REPORT INFORMATION
  Report Type: Spontaneous
  Country: US (occurrence: None)
  Receive Date: 20240402
  Receipt Date: 20240402
  Transmission Date: 20240716
  Serious: Yes (Disabling)
  Sender: FDA-Public Use
  Company Number: None

PATIENT
  Age: 63 Year
  Sex: Female
  Weight: 123.75 kg

DRUGS (1)
  1. AIMOVIG [Suspect]
     Active Substance: ERENUMAB-AOOE
     Indication: Hemiplegic migraine
     Dosage: OTHER QUANTITY : 1 INJECTION(S);?OTHER FREQUENCY : ONCE A MONTH;?
     Route: 030
     Dates: start: 20240305, end: 20240305

REACTIONS (6)
  - Hemiplegic migraine [None]
  - Condition aggravated [None]
  - Therapeutic product effect decreased [None]
  - Fatigue [None]
  - Muscular weakness [None]
  - Apathy [None]

NARRATIVE: CASE EVENT DATE: 20240316
